FAERS Safety Report 5656195-5 (Version None)
Quarter: 2008Q1

REPORT INFORMATION
  Report Type: 
  Country: None (occurrence: None)
  Receive Date: 20080308
  Receipt Date: 20080229
  Transmission Date: 20080703
  Serious: Yes (Other)
  Sender: FDA-Public Use
  Company Number: DK-ELI_LILLY_AND_COMPANY-DK200712003229

PATIENT

DRUGS (7)
  1. OLANZAPINE [Suspect]
     Indication: MANIA
     Dosage: 20 MG, AS NEEDED (10MG TABLET AND 2 X5MG TABLETS)
     Route: 064
     Dates: start: 20070702
  2. LITAREX [Concomitant]
     Indication: BIPOLAR I DISORDER
     Dosage: 4 D/F, 4/D
     Route: 064
     Dates: start: 20070621
  3. LITAREX [Concomitant]
     Dosage: 4 TABLETS ONLY IN THAT PERIOD
     Dates: start: 20070731, end: 20070811
  4. CISORDINOL /00075802/ [Concomitant]
     Indication: MANIA
     Dosage: 40 MG, UNKNOWN
     Route: 064
     Dates: start: 20070619, end: 20070624
  5. SERENASE                           /00027401/ [Concomitant]
     Indication: MANIA
     Dosage: 30 UG, AS NEEDED (20MG +10MG)
     Route: 064
     Dates: start: 20070621, end: 20070702
  6. ALOPAM [Concomitant]
     Indication: ANXIETY
     Dosage: 7.5 MG, 3/D
     Route: 064
     Dates: start: 20060626, end: 20070731
  7. BENZODIAZEPINE DERIVATIVES [Concomitant]
     Dosage: UNK, UNKNOWN
     Route: 064

REACTIONS (2)
  - DRUG EXPOSURE DURING PREGNANCY [None]
  - DRUG WITHDRAWAL SYNDROME NEONATAL [None]
